FAERS Safety Report 5444055-4 (Version None)
Quarter: 2007Q3

REPORT INFORMATION
  Report Type: 
  Country: None (occurrence: None)
  Receive Date: 20070831
  Receipt Date: 20070816
  Transmission Date: 20080115
  Serious: Yes (Hospitalization)
  Sender: FDA-Public Use
  Company Number: IMP_03090_2007

PATIENT
  Sex: Female

DRUGS (5)
  1. BUPROPION HCL [Suspect]
     Indication: DEPRESSION
     Dosage: (300 MG QD ORAL)
     Route: 048
     Dates: start: 20070801, end: 20070801
  2. BUPROPION HYDROCHLORIDE [Suspect]
     Indication: DEPRESSION
     Dosage: (150 MG QD ORAL), (150 MG QD ORAL)
     Route: 048
     Dates: start: 20070701, end: 20070801
  3. BUPROPION HYDROCHLORIDE [Suspect]
     Indication: DEPRESSION
     Dosage: (150 MG QD ORAL), (150 MG QD ORAL)
     Route: 048
     Dates: start: 20070801
  4. AMBIEN [Concomitant]
  5. XANAX (UNKNOWN) [Concomitant]

REACTIONS (9)
  - BLOOD PRESSURE INCREASED [None]
  - CONDITION AGGRAVATED [None]
  - DIZZINESS [None]
  - FLUSHING [None]
  - INSOMNIA [None]
  - PRESYNCOPE [None]
  - PYREXIA [None]
  - THROAT TIGHTNESS [None]
  - TREMOR [None]
